FAERS Safety Report 15630548 (Version 1)
Quarter: 2018Q4

REPORT INFORMATION
  Report Type: Spontaneous
  Country: FR (occurrence: FR)
  Receive Date: 20181119
  Receipt Date: 20181119
  Transmission Date: 20190205
  Serious: Yes (Other)
  Sender: FDA-Public Use
  Company Number: FR-AUROBINDO-AUR-APL-2018-017067

PATIENT
  Age: 63 Year
  Sex: Male

DRUGS (3)
  1. VARUBY [Suspect]
     Active Substance: ROLAPITANT
     Indication: PROPHYLAXIS OF NAUSEA AND VOMITING
     Dosage: UNK
     Route: 048
     Dates: start: 20180223, end: 20180223
  2. PACLITAXEL. [Suspect]
     Active Substance: PACLITAXEL
     Indication: CHEMOTHERAPY
     Dosage: 1?RE CURE 2NDE LIGNE ()
     Route: 042
     Dates: start: 20180223, end: 20180223
  3. CARBOPLATIN. [Suspect]
     Active Substance: CARBOPLATIN
     Indication: CHEMOTHERAPY
     Dosage: 1?RE CURE 2NDE LIGNE ()
     Route: 042
     Dates: start: 20180223, end: 20180223

REACTIONS (2)
  - Toxic skin eruption [Recovered/Resolved]
  - Thrombocytopenia [Not Recovered/Not Resolved]

NARRATIVE: CASE EVENT DATE: 20180302
